FAERS Safety Report 6585947-2 (Version None)
Quarter: 2010Q1

REPORT INFORMATION
  Report Type: 
  Country: None (occurrence: None)
  Receive Date: 20100217
  Receipt Date: 20100211
  Transmission Date: 20100710
  Serious: Yes (Hospitalization)
  Sender: FDA-Public Use
  Company Number: DE-ABBOTT-10P-062-0625870-00

PATIENT
  Sex: Female

DRUGS (2)
  1. HUMIRA [Suspect]
     Indication: RHEUMATOID ARTHRITIS
     Route: 058
     Dates: start: 20080129
  2. ANTIHYPERTENSIVE DRUG [Concomitant]
     Indication: HYPERTENSION

REACTIONS (3)
  - LYMPHADENOPATHY [None]
  - PHARYNGEAL DISORDER [None]
  - SALIVARY GLAND ENLARGEMENT [None]
